FAERS Safety Report 7652349-7 (Version None)
Quarter: 2011Q3

REPORT INFORMATION
  Report Type: 
  Country: None (occurrence: None)
  Receive Date: 20110803
  Receipt Date: 20110720
  Transmission Date: 20111222
  Serious: Yes (Death)
  Sender: FDA-Public Use
  Company Number: US-MYLANLABS-2011S1015943

PATIENT

DRUGS (3)
  1. DACTINOMYCIN [Suspect]
     Indication: MALIGNANT SOFT TISSUE NEOPLASM
  2. MELPHALAN HYDROCHLORIDE [Suspect]
     Indication: MALIGNANT SOFT TISSUE NEOPLASM
     Route: 042
  3. HEPARIN [Concomitant]

REACTIONS (1)
  - METASTATIC NEOPLASM [None]
